FAERS Safety Report 4946461-0 (Version None)
Quarter: 2006Q1

REPORT INFORMATION
  Report Type: 
  Country: None (occurrence: None)
  Receive Date: 20060313
  Receipt Date: 20060306
  Transmission Date: 20060701
  Serious: Yes (Other)
  Sender: FDA-Public Use
  Company Number: 2006032526

PATIENT
  Age: 41 Year
  Sex: Male
  Weight: 97.5234 kg

DRUGS (5)
  1. LIPITOR [Suspect]
     Indication: BLOOD CHOLESTEROL INCREASED
     Dosage: 10 MG (10 MG, 1 IN 1 D), ORAL
     Route: 048
  2. METOPROLOL (METOPROLOL) [Concomitant]
  3. ZETIA [Concomitant]
  4. VITAMINS NOS (VITAMINS NOS) [Concomitant]
  5. PLAVIX [Concomitant]

REACTIONS (3)
  - CORONARY ARTERY OCCLUSION [None]
  - DRUG EFFECT DECREASED [None]
  - GLUCOSE TOLERANCE IMPAIRED [None]
